FAERS Safety Report 4378409-4 (Version None)
Quarter: 2004Q2

REPORT INFORMATION
  Report Type: 
  Country: None (occurrence: None)
  Receive Date: 20040609
  Receipt Date: 20040603
  Transmission Date: 20050107
  Serious: Yes (Other)
  Sender: FDA-Public Use
  Company Number: USA-2004-0013920

PATIENT
  Age: 42 Year
  Sex: Male

DRUGS (4)
  1. OXYCONTIN [Suspect]
     Indication: CANCER PAIN
     Dosage: 40 MG, Q12H, ORAL; SEE IMAGE
     Route: 048
     Dates: start: 20030901
  2. OXYCONTIN [Suspect]
     Indication: CANCER PAIN
     Dosage: 40 MG, Q12H, ORAL; SEE IMAGE
     Route: 048
     Dates: start: 20040201
  3. PREVACID [Concomitant]
  4. VICODIN [Concomitant]

REACTIONS (3)
  - DRUG EFFECT DECREASED [None]
  - MALIGNANT NEOPLASM PROGRESSION [None]
  - PAIN [None]
